FAERS Safety Report 9716253 (Version 2)
Quarter: 2013Q4

REPORT INFORMATION
  Report Type: Spontaneous
  Country: US (occurrence: US)
  Receive Date: 20131127
  Receipt Date: 20131205
  Transmission Date: 20140711
  Serious: No
  Sender: FDA-Public Use
  Company Number: US-TEVA-443989USA

PATIENT
  Age: 80 Year
  Sex: Male
  Weight: 81.27 kg

DRUGS (4)
  1. PROAIR HFA [Suspect]
     Indication: DYSPNOEA
     Dosage: PUFFS
     Dates: start: 20131018
  2. LISINOPRIL [Concomitant]
     Indication: ATRIAL FIBRILLATION
  3. WARFARIN [Concomitant]
     Indication: ATRIAL FIBRILLATION
  4. TYLENOL [Concomitant]
     Indication: PAIN
     Dosage: AS NEEDED

REACTIONS (2)
  - Drug effect decreased [Not Recovered/Not Resolved]
  - Dyspnoea [Not Recovered/Not Resolved]
